FAERS Safety Report 4797351-8 (Version None)
Quarter: 2005Q4

REPORT INFORMATION
  Report Type: 
  Country: None (occurrence: None)
  Receive Date: 20051013
  Receipt Date: 20051005
  Transmission Date: 20060501
  Serious: Yes (Other)
  Sender: FDA-Public Use
  Company Number: US-JNJFOC-20051001253

PATIENT
  Sex: Female
  Weight: 86.18 kg

DRUGS (12)
  1. DURAGESIC-100 [Suspect]
     Route: 062
  2. VERAPAMIL [Concomitant]
     Indication: ARRHYTHMIA
     Dosage: 60 MG/NIGHT
  3. PAXIL [Concomitant]
     Indication: DEPRESSION
     Route: 048
  4. ELAVIL [Concomitant]
  5. SYNTHROID [Concomitant]
     Indication: THYROID DISORDER
  6. CLOZAPINE [Concomitant]
     Indication: THYROID DISORDER
     Route: 048
  7. LISINOPRIL [Concomitant]
     Route: 048
  8. DARVOCET [Concomitant]
     Route: 048
  9. DARVOCET [Concomitant]
     Indication: PAIN
     Route: 048
  10. PHENOBARBITOL [Concomitant]
     Route: 048
  11. NORCO [Concomitant]
     Route: 048
  12. NORCO [Concomitant]
     Indication: PAIN
     Dosage: 10/325, 3 IN 1 DAY
     Route: 048

REACTIONS (4)
  - CARDIAC ARREST [None]
  - DRUG WITHDRAWAL SYNDROME [None]
  - PNEUMONIA [None]
  - THERAPEUTIC RESPONSE DECREASED [None]
